FAERS Safety Report 10649041 (Version 2)
Quarter: 2015Q1

REPORT INFORMATION
  Report Type: Spontaneous
  Country: FR (occurrence: FR)
  Receive Date: 20141212
  Receipt Date: 20150226
  Transmission Date: 20150720
  Serious: Yes (Hospitalization)
  Sender: FDA-Public Use
  Company Number: FR-PFIZER INC-2014336436

PATIENT
  Age: 8 Year
  Sex: Female
  Weight: 39 kg

DRUGS (4)
  1. LAMICTAL [Concomitant]
     Active Substance: LAMOTRIGINE
     Dosage: UNK
     Dates: start: 20140812, end: 20140822
  2. ZARONTIN [Suspect]
     Active Substance: ETHOSUXIMIDE
     Indication: EPILEPSY
     Dosage: 7.5 ML, 2X/DAY
     Route: 048
     Dates: start: 20140822
  3. MICROPAKINE LP [Concomitant]
     Dosage: 200 MG, DAILY
  4. MICROPAKINE LP [Concomitant]
     Dosage: 200 MG, 2X/DAY
     Dates: end: 20141020

REACTIONS (3)
  - Night sweats [Recovered/Resolved]
  - Lymphadenopathy [Recovered/Resolved]
  - Pyrexia [Recovered/Resolved]

NARRATIVE: CASE EVENT DATE: 20140901
